FAERS Safety Report 8281958 (Version 12)
Quarter: 2014Q2

REPORT INFORMATION
  Report Type: Report from Study
  Country: US (occurrence: US)
  Receive Date: 20111209
  Receipt Date: 20140429
  Transmission Date: 20141212
  Serious: Yes (Hospitalization)
  Sender: FDA-Public Use
  Company Number: US-ROCHE-789378

PATIENT
  Age: 75 Year
  Sex: Female
  Weight: 74.4 kg

DRUGS (27)
  1. VEMURAFENIB [Suspect]
     Indication: PAPILLARY THYROID CANCER
     Dosage: LAST DOSE PRIOR TO SAE 07 JULY 2011.
     Route: 048
  2. VEMURAFENIB [Suspect]
     Dosage: DOSE MODIFIED DUE TO AN ADVERSE EVENT AND THEN INTERRUPTED ON 22 JUL 2011 (REASON NOT SPECIFIED)
     Route: 048
     Dates: start: 20110714, end: 20110722
  3. VEMURAFENIB [Suspect]
     Dosage: DOSE MODIFIED DUE TO AE, THEN INTERRUPTED AGAIN (REASON NOT SPECIFIED)
     Route: 048
     Dates: start: 20110728, end: 20110810
  4. VEMURAFENIB [Suspect]
     Route: 048
     Dates: start: 20110819, end: 20110826
  5. VEMURAFENIB [Suspect]
     Route: 048
     Dates: start: 20110827, end: 20110918
  6. VEMURAFENIB [Suspect]
     Route: 048
     Dates: start: 20110920, end: 20110922
  7. VEMURAFENIB [Suspect]
     Route: 048
     Dates: start: 20110929, end: 20111013
  8. VEMURAFENIB [Suspect]
     Route: 048
     Dates: start: 20111014, end: 20111020
  9. VEMURAFENIB [Suspect]
     Route: 048
     Dates: start: 20111021, end: 20111023
  10. VEMURAFENIB [Suspect]
     Route: 048
     Dates: start: 20111024, end: 20111112
  11. VEMURAFENIB [Suspect]
     Route: 048
     Dates: start: 20111117, end: 20111219
  12. VEMURAFENIB [Suspect]
     Route: 048
     Dates: start: 20111221, end: 20120101
  13. VEMURAFENIB [Suspect]
     Route: 048
  14. BIFIDOBACTERIUM [Concomitant]
     Indication: PROPHYLAXIS
     Dosage: REPORT AS ALIGN OR
     Route: 048
     Dates: start: 20090604, end: 20111218
  15. ASPIRIN [Concomitant]
     Indication: PROPHYLAXIS
     Route: 048
  16. ASPIRIN [Concomitant]
     Route: 048
  17. ATIVAN [Concomitant]
     Indication: INSOMNIA
     Route: 048
     Dates: start: 20080425, end: 20110922
  18. ATIVAN [Concomitant]
     Route: 048
     Dates: start: 20111216, end: 20130214
  19. CITRACAL + D [Concomitant]
     Indication: PROPHYLAXIS
     Route: 048
     Dates: start: 20110623, end: 20111020
  20. CHOLECALCIFEROL [Concomitant]
     Route: 065
  21. CICLESONIDE [Concomitant]
     Route: 065
  22. CODEINE SULFATE [Concomitant]
     Indication: DIARRHOEA
     Dosage: TAKEN FOR AE:DIARRHOEA
     Route: 048
  23. IBUPROFEN [Concomitant]
     Route: 065
  24. NADOLOL [Concomitant]
     Indication: ESSENTIAL HYPERTENSION
     Route: 048
  25. NORVASC [Concomitant]
     Indication: ESSENTIAL HYPERTENSION
     Route: 048
     Dates: start: 20080501, end: 20110714
  26. TRAMADOL [Concomitant]
     Route: 065
  27. SYNTHROID [Concomitant]
     Indication: THYROIDECTOMY
     Route: 048
     Dates: start: 20100909

REACTIONS (7)
  - Hypotension [Recovered/Resolved]
  - Rash erythematous [Recovered/Resolved]
  - Fatigue [Recovered/Resolved with Sequelae]
  - Aspartate aminotransferase increased [Recovered/Resolved]
  - Alanine aminotransferase increased [Recovered/Resolved]
  - Rash macular [Recovered/Resolved]
  - Blood uric acid increased [Recovered/Resolved]
